FAERS Safety Report 9812761 (Version 2)
Quarter: 2014Q2

REPORT INFORMATION
  Report Type: Spontaneous
  Country: US (occurrence: None)
  Receive Date: 20140108
  Receipt Date: 20140414
  Transmission Date: 20141212
  Serious: Yes (Other)
  Sender: FDA-Public Use
  Company Number: ADR-2014-00025

PATIENT
  Age: 17 Year
  Sex: Female

DRUGS (2)
  1. GABLOFEN - 2000 MCG/ML [Suspect]
     Indication: MUSCLE SPASTICITY
     Dosage: INTRATHECAL.
  2. BACLOFEN [Suspect]
     Dosage: ORAL.

REACTIONS (2)
  - Cough [None]
  - Convulsion [None]
